FAERS Safety Report 9860700 (Version 1)
Quarter: 2014Q1

REPORT INFORMATION
  Report Type: Spontaneous
  Country: None (occurrence: US)
  Receive Date: 20140202
  Receipt Date: 20140202
  Transmission Date: 20141002
  Serious: No
  Sender: FDA-Public Use
  Company Number: US-ALLERGAN-1300560US

PATIENT
  Sex: Female

DRUGS (2)
  1. BOTOX COSMETIC [Suspect]
     Indication: SKIN WRINKLING
     Dosage: 20 UNITS, SINGLE
     Route: 030
     Dates: start: 20121011, end: 20121011
  2. VESICARE                           /01735901/ [Concomitant]
     Indication: HYPERTONIC BLADDER

REACTIONS (3)
  - Urinary tract infection [Unknown]
  - Bladder spasm [Unknown]
  - Urinary incontinence [Unknown]
